FAERS Safety Report 5341870-2 (Version None)
Quarter: 2007Q2

REPORT INFORMATION
  Report Type: 
  Country: None (occurrence: None)
  Receive Date: 20070529
  Receipt Date: 20070529
  Transmission Date: 20071010
  Serious: No
  Sender: FDA-Public Use
  Company Number: None

PATIENT
  Age: 83 Year
  Sex: Female

DRUGS (1)
  1. RISENDRONATE [Suspect]
     Indication: GASTRIC PERFORATION
     Dosage: 35MG PO QWEEK
     Route: 048

REACTIONS (1)
  - GASTRIC PERFORATION [None]
